FAERS Safety Report 25820070 (Version 2)
Quarter: 2025Q3

REPORT INFORMATION
  Report Type: Report from Study
  Country: US (occurrence: US)
  Receive Date: 20250919
  Receipt Date: 20250920
  Transmission Date: 20251021
  Serious: No
  Sender: ABBVIE
  Company Number: US-ABBVIE-6459988

PATIENT
  Age: 43 Year
  Sex: Female

DRUGS (1)
  1. SKYRIZI [Suspect]
     Active Substance: RISANKIZUMAB-RZAA
     Indication: Psoriatic arthropathy
     Dosage: STRENGTH: 150 MG/ML
     Route: 058
     Dates: start: 20240223

REACTIONS (2)
  - Product storage error [Unknown]
  - Product sterility issue [Unknown]

NARRATIVE: CASE EVENT DATE: 20250101
